FAERS Safety Report 5897604-6 (Version None)
Quarter: 2008Q3

REPORT INFORMATION
  Report Type: 
  Country: None (occurrence: None)
  Receive Date: 20080923
  Receipt Date: 20080915
  Transmission Date: 20090109
  Serious: Yes (Other)
  Sender: FDA-Public Use
  Company Number: 08H-167-0314908-00

PATIENT
  Age: 24 Month
  Sex: Male
  Weight: 9.6 kg

DRUGS (4)
  1. PROPOFOL [Suspect]
     Indication: SEDATIVE THERAPY
     Dosage: 1 MG/KG 2 TIMES, INTRAVENOUS BOLUS
     Route: 042
  2. MIDAZOLAM HCL [Suspect]
     Indication: SEDATIVE THERAPY
     Dosage: 0.5 MG/KG, NOT REPORTED, ORAL  0.1 MG/KG, NOT REPORTED, ORAL
     Route: 048
  3. 0.25% LEVOBUPIVACAINE (LEVOBUPIVACAINE) [Concomitant]
  4. RECOMBINANT HUMAN ACID ALPHA-GLUCOSIDASE (ACID ALPHA GLUCOSIDASE) [Concomitant]

REACTIONS (4)
  - BLOOD PRESSURE IMMEASURABLE [None]
  - HYPERHIDROSIS [None]
  - OXYGEN SATURATION DECREASED [None]
  - TACHYCARDIA [None]
